FAERS Safety Report 16454841 (Version 1)
Quarter: 2019Q2

REPORT INFORMATION
  Report Type: Spontaneous
  Country: US (occurrence: US)
  Receive Date: 20190619
  Receipt Date: 20190619
  Transmission Date: 20190711
  Serious: No
  Sender: FDA-Public Use
  Company Number: US-ROCHE-2181836

PATIENT
  Sex: Female

DRUGS (1)
  1. ACTEMRA [Suspect]
     Active Substance: TOCILIZUMAB
     Indication: TEMPORAL ARTERITIS
     Route: 058
     Dates: start: 20180905

REACTIONS (7)
  - Headache [Unknown]
  - Nausea [Unknown]
  - Vomiting [Unknown]
  - Weight increased [Unknown]
  - Dizziness [Unknown]
  - Dyspnoea [Unknown]
  - Alopecia [Unknown]
